FAERS Safety Report 7546857-7 (Version None)
Quarter: 2011Q2

REPORT INFORMATION
  Report Type: 
  Country: None (occurrence: None)
  Receive Date: 20110614
  Receipt Date: 20110609
  Transmission Date: 20111010
  Serious: Yes (Life-Threatening, Hospitalization, Congenital Anomaly, Other)
  Sender: FDA-Public Use
  Company Number: US-PFIZER INC-2008050217

PATIENT
  Sex: Male
  Weight: 4.1 kg

DRUGS (6)
  1. ZOLOFT [Suspect]
     Indication: PREMENSTRUAL SYNDROME
     Dosage: 50 MG ONCE A DAY AND 100 MG
     Route: 064
     Dates: start: 20050101, end: 20080301
  2. ZOLOFT [Suspect]
     Indication: DEPRESSION
  3. AMBIEN [Concomitant]
     Dosage: UNK
  4. AUGMENTIN XR [Concomitant]
     Indication: ACUTE TONSILLITIS
     Dosage: 1000-62.5 MG, TWO TABLETS TWICE DAILY
     Route: 064
     Dates: start: 20060901
  5. HYDROCODONE [Concomitant]
     Dosage: UNK
  6. ZOLOFT [Suspect]
     Indication: ANXIETY

REACTIONS (5)
  - TRANSPOSITION OF THE GREAT VESSELS [None]
  - COLLAPSE OF LUNG [None]
  - POST PROCEDURAL COMPLICATION [None]
  - EAR INFECTION [None]
  - DRUG EXPOSURE DURING PREGNANCY [None]
